FAERS Safety Report 4655057-X (Version None)
Quarter: 2005Q2

REPORT INFORMATION
  Report Type: 
  Country: None (occurrence: None)
  Receive Date: 20050504
  Receipt Date: 20050427
  Transmission Date: 20051028
  Serious: Yes (Hospitalization)
  Sender: FDA-Public Use
  Company Number: MED000135

PATIENT

DRUGS (1)
  1. LACTATED RINGER'S [Suspect]

REACTIONS (1)
  - ANAPHYLACTIC REACTION [None]
